FAERS Safety Report 7728156-3 (Version None)
Quarter: 2011Q3

REPORT INFORMATION
  Report Type: 
  Country: None (occurrence: None)
  Receive Date: 20110905
  Receipt Date: 20110824
  Transmission Date: 20111222
  Serious: Yes (Hospitalization)
  Sender: FDA-Public Use
  Company Number: JP-BRISTOL-MYERS SQUIBB COMPANY-16015729

PATIENT
  Age: 4 Decade
  Sex: Female

DRUGS (6)
  1. PACLITAXEL [Suspect]
     Indication: BREAST CANCER
  2. AMPHOTERICIN B [Suspect]
  3. ZONISAMIDE [Suspect]
     Indication: CONVULSION PROPHYLAXIS
  4. LANSOPRAZOLE [Suspect]
  5. SULFAMETHOXAZOLE AND TRIMETHOPRIM [Suspect]
  6. STEROIDS [Suspect]

REACTIONS (4)
  - AGRANULOCYTOSIS [None]
  - INFLAMMATION [None]
  - PNEUMONIA [None]
  - HYPERSENSITIVITY [None]
